FAERS Safety Report 5625879-7 (Version None)
Quarter: 2008Q1

REPORT INFORMATION
  Report Type: 
  Country: None (occurrence: None)
  Receive Date: 20080211
  Receipt Date: 20080128
  Transmission Date: 20080703
  Serious: No
  Sender: FDA-Public Use
  Company Number: 8029629

PATIENT
  Age: 10 Year
  Sex: Male
  Weight: 33.5 kg

DRUGS (5)
  1. METHYLPHENIDATE HCL [Suspect]
     Dosage: 40 MG
  2. METHYLPHENIDATE HCL [Suspect]
     Dosage: 17.5 MG
     Dates: start: 20070205, end: 20070404
  3. METHYLPHENIDATE HCL [Suspect]
     Dosage: 35 MG
     Dates: start: 20070405
  4. METHYLPHENIDATE HCL [Suspect]
     Dosage: 47.5 MG
     Dates: start: 20070120, end: 20070204
  5. METHYLPHENIDATE HCL [Suspect]
     Dosage: 30 MG /D
     Dates: start: 20070205

REACTIONS (6)
  - ANXIETY [None]
  - APATHY [None]
  - CRYING [None]
  - FATIGUE [None]
  - ONYCHOPHAGIA [None]
  - TIC [None]
